FAERS Safety Report 25169785 (Version 1)
Quarter: 2025Q2

REPORT INFORMATION
  Report Type: Report from Study
  Country: JP (occurrence: JP)
  Receive Date: 20250407
  Receipt Date: 20250407
  Transmission Date: 20250717
  Serious: Yes (Hospitalization)
  Sender: UCB
  Company Number: JP-UCBJ-CD202504614UCBPHAPROD

PATIENT
  Age: 36 Year
  Sex: Female

DRUGS (1)
  1. FENFLURAMINE HYDROCHLORIDE [Suspect]
     Active Substance: FENFLURAMINE HYDROCHLORIDE
     Indication: Lennox-Gastaut syndrome
     Dosage: 4 MILLILITER, WEEKLY (QW)
     Route: 048
     Dates: start: 20240807

REACTIONS (3)
  - Craniofacial fracture [Not Recovered/Not Resolved]
  - Fall [Unknown]
  - Agitation [Unknown]
